FAERS Safety Report 7911899-6 (Version None)
Quarter: 2011Q4

REPORT INFORMATION
  Report Type: 
  Country: None (occurrence: None)
  Receive Date: 20111114
  Receipt Date: 20110909
  Transmission Date: 20120403
  Serious: Yes (Hospitalization)
  Sender: FDA-Public Use
  Company Number: US-ROCHE-1012356

PATIENT
  Sex: Female

DRUGS (6)
  1. TIOTROPIUM [Concomitant]
  2. FORMOTEROL FUMARATE [Concomitant]
  3. BRICANYL [Concomitant]
  4. XOLAIR [Suspect]
     Indication: ASTHMA
     Dates: start: 20081108
  5. BUDESONIDE [Concomitant]
  6. ALBUTEROL SULFATE AUTOHALER [Concomitant]

REACTIONS (1)
  - ASTHMA [None]
